FAERS Safety Report 10850804 (Version 1)
Quarter: 2015Q1

REPORT INFORMATION
  Report Type: Spontaneous
  Country: US (occurrence: US)
  Receive Date: 20150222
  Receipt Date: 20150222
  Transmission Date: 20150721
  Serious: No
  Sender: FDA-Public Use
  Company Number: US-ALLERGAN-1405648US

PATIENT
  Age: 50 Year
  Sex: Female

DRUGS (5)
  1. BOTOX [Suspect]
     Active Substance: ONABOTULINUMTOXINA
     Indication: SKIN WRINKLING
  2. JUVEDERM [Suspect]
     Active Substance: HYALURONIC ACID
     Indication: SKIN COSMETIC PROCEDURE
  3. VOLUMA [Suspect]
     Active Substance: UNSPECIFIED INGREDIENT
     Indication: SKIN COSMETIC PROCEDURE
  4. BOTOX [Suspect]
     Active Substance: ONABOTULINUMTOXINA
     Indication: SKIN WRINKLING
  5. BOTOX [Suspect]
     Active Substance: ONABOTULINUMTOXINA
     Indication: FACE LIFT

REACTIONS (9)
  - Facial pain [Unknown]
  - Swelling face [Recovering/Resolving]
  - Feeling hot [Recovered/Resolved]
  - Rash [Unknown]
  - Malaise [Unknown]
  - Erythema [Unknown]
  - Granuloma [Unknown]
  - Off label use [Unknown]
  - Injection site pain [Unknown]
